FAERS Safety Report 20682935 (Version 3)
Quarter: 2022Q2

REPORT INFORMATION
  Report Type: Spontaneous
  Country: US (occurrence: US)
  Receive Date: 20220407
  Receipt Date: 20220427
  Transmission Date: 20220721
  Serious: Yes (Other)
  Sender: FDA-Public Use
  Company Number: US-TOLMAR, INC.-22US033795

PATIENT
  Age: 62 Year
  Sex: Male

DRUGS (17)
  1. ELIGARD [Suspect]
     Active Substance: LEUPROLIDE ACETATE
     Indication: Prostate cancer
     Dosage: 45 MILLIGRAM, Q 6 MONTH
     Route: 058
     Dates: start: 20210830
  2. ALOGLIPTIN AND METFORMIN HYDROCHLORIDE [Suspect]
     Active Substance: ALOGLIPTIN BENZOATE\METFORMIN HYDROCHLORIDE
     Indication: Product used for unknown indication
     Dosage: 12.5 MILLIGRAM/1000 MILLIGRAM BID
     Dates: start: 202202, end: 20220330
  3. JANUMET [Concomitant]
     Active Substance: METFORMIN HYDROCHLORIDE\SITAGLIPTIN PHOSPHATE
     Indication: Product used for unknown indication
     Dosage: 50 MILLIGRAM / 1000 MILLIGRAM, BID
     Route: 048
     Dates: start: 20220226
  4. JANUMET [Concomitant]
     Active Substance: METFORMIN HYDROCHLORIDE\SITAGLIPTIN PHOSPHATE
     Dosage: 50 MILLIGRAM, BID
     Dates: start: 20220330
  5. ACARBOSE [Concomitant]
     Active Substance: ACARBOSE
     Indication: Product used for unknown indication
     Dosage: 100 MILLIGRAM, TID
     Route: 048
  6. LOSARTAN [Concomitant]
     Active Substance: LOSARTAN
     Indication: Product used for unknown indication
     Dosage: 50 MILLIGRAM, QD
     Route: 048
  7. HYDROCHLOROTHIAZIDE [Concomitant]
     Active Substance: HYDROCHLOROTHIAZIDE
     Indication: Product used for unknown indication
     Dosage: 12.5 MILLIGRAM, QD
     Route: 048
  8. ATORVASTATIN [Concomitant]
     Active Substance: ATORVASTATIN
     Indication: Blood cholesterol
     Dosage: 10 MILLIGRAM, QD
     Route: 048
     Dates: start: 202201
  9. ROSUVASTATIN [Concomitant]
     Active Substance: ROSUVASTATIN
     Indication: Blood cholesterol
     Dosage: 5 MILLIGRAM, QD
  10. TAMSULOSIN [Concomitant]
     Active Substance: TAMSULOSIN
     Indication: Product used for unknown indication
     Dosage: 0.4 MILLIGRAM, QD
     Route: 048
  11. LEVOTHYROXINE [Concomitant]
     Active Substance: LEVOTHYROXINE
     Indication: Product used for unknown indication
     Dosage: 25 MICROGRAM, 4/WEEK
     Dates: start: 202106
  12. LEVOTHYROXINE [Concomitant]
     Active Substance: LEVOTHYROXINE
     Dosage: 25 MICROGRAM, 5/WEEK
  13. CENTRUM SILVER [ASCORBIC ACID;BETACAROTENE;BIOTIN;CALCIUM;CHROMIUM;COL [Concomitant]
     Indication: Product used for unknown indication
     Dosage: UNK, BEDTIME
     Dates: start: 2002
  14. ASPIRIN [Concomitant]
     Active Substance: ASPIRIN
     Indication: Product used for unknown indication
     Dosage: 81 MILLIGRAM, BEDTIME
     Route: 048
     Dates: start: 1997
  15. LUTEIN ZEAXANTHIN [Concomitant]
     Indication: Eye disorder
     Dosage: UNK, QD
  16. UNSPECIFIED INGREDIENT [Concomitant]
     Active Substance: UNSPECIFIED INGREDIENT
     Indication: Diabetes mellitus
  17. UNSPECIFIED INGREDIENT [Concomitant]
     Active Substance: UNSPECIFIED INGREDIENT
     Indication: Diabetes mellitus

REACTIONS (13)
  - Hallucination [Unknown]
  - Hot flush [Not Recovered/Not Resolved]
  - Chest pain [Unknown]
  - Exercise tolerance decreased [Not Recovered/Not Resolved]
  - Neck pain [Unknown]
  - Spondylitis [Unknown]
  - Product dose omission issue [Unknown]
  - Dry mouth [Not Recovered/Not Resolved]
  - Pain in extremity [Unknown]
  - Back pain [Unknown]
  - Fatigue [Not Recovered/Not Resolved]
  - Hyperhidrosis [Not Recovered/Not Resolved]
  - Blood testosterone abnormal [Unknown]

NARRATIVE: CASE EVENT DATE: 20210901
